FAERS Safety Report 5097635-2 (Version None)
Quarter: 2006Q3

REPORT INFORMATION
  Report Type: 
  Country: None (occurrence: None)
  Receive Date: 20060901
  Receipt Date: 20060818
  Transmission Date: 20061208
  Serious: Yes (Hospitalization, Other)
  Sender: FDA-Public Use
  Company Number: CERZ-10918

PATIENT
  Age: 69 Year
  Sex: Male
  Weight: 78.9259 kg

DRUGS (18)
  1. CEREZYME [Suspect]
     Indication: GAUCHER'S DISEASE
     Dosage: 70 U/KG Q2WKS IV
     Route: 042
     Dates: start: 19980605
  2. GEMFIBROZIL [Concomitant]
  3. ALLOPURINOL [Concomitant]
  4. DIOVAN [Concomitant]
  5. NORVASC [Concomitant]
  6. FLOMAX [Concomitant]
  7. IRON [Concomitant]
  8. ARANESP [Concomitant]
  9. ARGON PLASMA COAGULATION TREATMENTS [Concomitant]
  10. BUMEX [Concomitant]
  11. TRICOR [Concomitant]
  12. SODIUM BICARBONATE [Concomitant]
  13. ASPIRIN [Concomitant]
  14. CALCITRIOL [Concomitant]
  15. DIAZEM [Concomitant]
  16. ZEMPLAR [Concomitant]
  17. CARDURA [Concomitant]
  18. LASIX [Concomitant]

REACTIONS (26)
  - ANGINA PECTORIS [None]
  - ATRIAL FIBRILLATION [None]
  - CARDIAC FAILURE CONGESTIVE [None]
  - CHEST DISCOMFORT [None]
  - CONDITION AGGRAVATED [None]
  - CORONARY ARTERY BYPASS [None]
  - CORONARY ARTERY OCCLUSION [None]
  - DYSPNOEA [None]
  - EPIGASTRIC DISCOMFORT [None]
  - EXTRASYSTOLES [None]
  - HAEMODIALYSIS [None]
  - HYPERKALAEMIA [None]
  - ILEUS [None]
  - PAIN IN EXTREMITY [None]
  - PALPITATIONS [None]
  - PARAESTHESIA [None]
  - PULMONARY OEDEMA [None]
  - RECTAL HAEMORRHAGE [None]
  - RENAL FAILURE CHRONIC [None]
  - SMALL INTESTINAL OBSTRUCTION [None]
  - STENT PLACEMENT [None]
  - SUPRAVENTRICULAR TACHYCARDIA [None]
  - VASCULAR GRAFT OCCLUSION [None]
  - VASCULAR PROCEDURE COMPLICATION [None]
  - VASCULAR PSEUDOANEURYSM [None]
  - VENTRICULAR TACHYCARDIA [None]
